FAERS Safety Report 7700820-1 (Version None)
Quarter: 2011Q3

REPORT INFORMATION
  Report Type: 
  Country: None (occurrence: None)
  Receive Date: 20110822
  Receipt Date: 20110819
  Transmission Date: 20111222
  Serious: Yes (Other)
  Sender: FDA-Public Use
  Company Number: JP-PFIZER INC-2011191262

PATIENT
  Sex: Male

DRUGS (1)
  1. LYRICA [Suspect]
     Indication: POST HERPETIC NEURALGIA
     Dosage: UNK
     Dates: start: 20110101

REACTIONS (1)
  - CHROMATURIA [None]
